FAERS Safety Report 7542640-7 (Version None)
Quarter: 2011Q2

REPORT INFORMATION
  Report Type: 
  Country: None (occurrence: None)
  Receive Date: 20110613
  Receipt Date: 20110526
  Transmission Date: 20111010
  Serious: No
  Sender: FDA-Public Use
  Company Number: US-B.I. PHARMACEUTICALS,INC./RIDGEFIELD-2011-BP-14103BP

PATIENT
  Age: 79 Year
  Sex: Male
  Weight: 81.65 kg

DRUGS (5)
  1. ALLOPURINOL [Concomitant]
     Indication: GOUT
  2. LISINOPRIL [Concomitant]
     Indication: HYPERTENSION
  3. PRADAXA [Suspect]
     Dosage: 150 MG
     Route: 048
     Dates: start: 20110501
  4. ALIPURINOL [Concomitant]
  5. PRADAXA [Suspect]
     Indication: ATRIAL FIBRILLATION
     Dosage: 300 MG
     Route: 048
     Dates: start: 20101201, end: 20110501

REACTIONS (2)
  - HAEMATOCHEZIA [None]
  - DYSENTERY [None]
